FAERS Safety Report 8984647 (Version 1)
Quarter: 2012Q4

REPORT INFORMATION
  Report Type: 
  Country: CH (occurrence: None)
  Receive Date: 20121214
  Receipt Date: 20121214
  Transmission Date: 20130627
  Serious: Yes (Disabling)
  Sender: FDA-Public Use
  Company Number: DSM-2012-01342

PATIENT
  Age: 54 Year
  Sex: Female
  Weight: 61 kg

DRUGS (4)
  1. OLMETEC [Suspect]
     Indication: ESSENTIAL HYPERTENSION
     Route: 048
     Dates: start: 2011, end: 20121004
  2. IBANDRONATE [Suspect]
     Indication: IDIOPATHIC OSTEOPOROSIS
     Route: 040
     Dates: start: 20120924, end: 20120924
  3. MIACALCIC [Suspect]
     Indication: OSTEOPOROSIS
     Route: 045
     Dates: start: 20120924, end: 20121004
  4. EUTHYROX [Concomitant]

REACTIONS (2)
  - Hypotension [None]
  - Renal tubular disorder [None]
